FAERS Safety Report 12054247 (Version 2)
Quarter: 2016Q1

REPORT INFORMATION
  Report Type: Report from Study
  Country: US (occurrence: US)
  Receive Date: 20160209
  Receipt Date: 20160308
  Transmission Date: 20160526
  Serious: Yes (Other)
  Sender: FDA-Public Use
  Company Number: US-AMGEN-USASL2016010204

PATIENT
  Age: 89 Year
  Sex: Female

DRUGS (8)
  1. PROLIA [Suspect]
     Active Substance: DENOSUMAB
     Indication: OSTEOPOROSIS POSTMENOPAUSAL
     Dosage: UNK
     Route: 065
  2. FUROSEMIDE. [Concomitant]
     Active Substance: FUROSEMIDE
     Route: 065
  3. XARELTO [Concomitant]
     Active Substance: RIVAROXABAN
     Route: 065
  4. METOPROLOL. [Concomitant]
     Active Substance: METOPROLOL
     Route: 065
  5. PREMARIN [Concomitant]
     Active Substance: ESTROGENS, CONJUGATED
     Indication: RESTLESS LEGS SYNDROME
     Route: 065
  6. SINGULAIR [Concomitant]
     Active Substance: MONTELUKAST SODIUM
     Route: 065
  7. POTASSIUM [Concomitant]
     Active Substance: POTASSIUM
     Route: 065
  8. COUMADIN [Concomitant]
     Active Substance: WARFARIN SODIUM
     Route: 065

REACTIONS (10)
  - Foot fracture [Unknown]
  - Fall [Unknown]
  - Dental implantation [Unknown]
  - Head injury [Recovered/Resolved]
  - Transient ischaemic attack [Unknown]
  - Toothache [Unknown]
  - Jaw disorder [Unknown]
  - Pain in jaw [Recovered/Resolved]
  - Cerebrovascular accident [Unknown]
  - Neck pain [Unknown]

NARRATIVE: CASE EVENT DATE: 2015
